FAERS Safety Report 15833811 (Version 2)
Quarter: 2019Q1

REPORT INFORMATION
  Report Type: Spontaneous
  Country: IT (occurrence: IT)
  Receive Date: 20190116
  Receipt Date: 20190204
  Transmission Date: 20190417
  Serious: Yes (Congenital Anomaly, Other)
  Sender: FDA-Public Use
  Company Number: PHHY2019IT005489

PATIENT
  Weight: 2.97 kg

DRUGS (1)
  1. PARACETAMOL [Suspect]
     Active Substance: ACETAMINOPHEN
     Indication: PRODUCT USED FOR UNKNOWN INDICATION
     Dosage: 1000 MG, UNK
     Route: 064

REACTIONS (3)
  - Foetal heart rate increased [Unknown]
  - Ductus arteriosus premature closure [Recovered/Resolved]
  - Foetal exposure during pregnancy [Unknown]
